FAERS Safety Report 14768931 (Version 4)
Quarter: 2018Q2

REPORT INFORMATION
  Report Type: Spontaneous
  Country: CA (occurrence: CA)
  Receive Date: 20180417
  Receipt Date: 20180629
  Transmission Date: 20180711
  Serious: Yes (Other)
  Sender: FDA-Public Use
  Company Number: CA-APOTEX-2018AP009824

PATIENT
  Age: 44 Year
  Sex: Female

DRUGS (5)
  1. APO-VALPROIC [Suspect]
     Active Substance: VALPROIC ACID
     Dosage: 3 DF, BID
     Route: 048
     Dates: start: 20180331
  2. SLEEP AID                          /00000402/ [Concomitant]
     Active Substance: DIPHENHYDRAMINE HYDROCHLORIDE
     Indication: PRODUCT USED FOR UNKNOWN INDICATION
     Dosage: UNK UNK, PRN
     Route: 065
     Dates: start: 2016
  3. MIRENA [Concomitant]
     Active Substance: LEVONORGESTREL
     Indication: POSTMENOPAUSAL HAEMORRHAGE
  4. MIRENA [Concomitant]
     Active Substance: LEVONORGESTREL
     Indication: CONTRACEPTION
     Dosage: UNK
     Route: 065
  5. APO-VALPROIC [Suspect]
     Active Substance: VALPROIC ACID
     Indication: SEIZURE
     Dosage: 250 MG, QID
     Route: 048
     Dates: start: 20121205

REACTIONS (4)
  - Product quality issue [Unknown]
  - Seizure [Recovered/Resolved]
  - Treatment failure [Unknown]
  - Abdominal discomfort [Recovered/Resolved]

NARRATIVE: CASE EVENT DATE: 20180331
